FAERS Safety Report 6073714-8 (Version None)
Quarter: 2009Q1

REPORT INFORMATION
  Report Type: 
  Country: None (occurrence: None)
  Receive Date: 20090211
  Receipt Date: 20090204
  Transmission Date: 20090719
  Serious: Yes (Other)
  Sender: FDA-Public Use
  Company Number: US-ELI_LILLY_AND_COMPANY-US200902001338

PATIENT
  Sex: Female
  Weight: 40.816 kg

DRUGS (1)
  1. HUMALOG [Suspect]
     Indication: TYPE 2 DIABETES MELLITUS
     Dosage: 5 U, UNK

REACTIONS (5)
  - ACCIDENT [None]
  - BLOOD GLUCOSE INCREASED [None]
  - PANCREATITIS [None]
  - TENDON INJURY [None]
  - WEIGHT DECREASED [None]
